FAERS Safety Report 7238136-2 (Version None)
Quarter: 2011Q1

REPORT INFORMATION
  Report Type: 
  Country: None (occurrence: None)
  Receive Date: 20110119
  Receipt Date: 20110119
  Transmission Date: 20110831
  Serious: Yes (Hospitalization, Disabling)
  Sender: FDA-Public Use
  Company Number: None

PATIENT
  Age: 64 Year
  Sex: Female
  Weight: 99.7913 kg

DRUGS (1)
  1. PROPOXYPHENE HCL AND ACETAMINOPHEN [Suspect]
     Dosage: 1 TABLET EVERY 6 HOURS PO
     Route: 048
     Dates: start: 20030223, end: 20101123

REACTIONS (3)
  - DIZZINESS [None]
  - FATIGUE [None]
  - CARDIAC STRESS TEST ABNORMAL [None]
